FAERS Safety Report 12280234 (Version 2)
Quarter: 2016Q4

REPORT INFORMATION
  Report Type: Report from Study
  Country: GB (occurrence: GB)
  Receive Date: 20160419
  Receipt Date: 20161222
  Transmission Date: 20170207
  Serious: No
  Sender: FDA-Public Use
  Company Number: GB-ROCHE-1743484

PATIENT
  Age: 52 Year
  Sex: Female

DRUGS (28)
  1. AMITRIPTYLINE [Concomitant]
     Active Substance: AMITRIPTYLINE
  2. SIMVASTATIN. [Concomitant]
     Active Substance: SIMVASTATIN
  3. CYCLIZINE [Concomitant]
     Active Substance: CYCLIZINE
     Route: 065
     Dates: start: 20160308
  4. ADRENALINE [Concomitant]
     Active Substance: EPINEPHRINE
  5. LORATADINE. [Concomitant]
     Active Substance: LORATADINE
  6. GTN [Concomitant]
     Active Substance: NITROGLYCERIN
  7. BISACODYL. [Concomitant]
     Active Substance: BISACODYL
  8. ADCAL (UNITED KINGDOM) [Concomitant]
  9. BETAMETHASONE. [Concomitant]
     Active Substance: BETAMETHASONE
  10. TERBUTALINE [Concomitant]
     Active Substance: TERBUTALINE
  11. FLUTICASONE [Concomitant]
     Active Substance: FLUTICASONE\FLUTICASONE PROPIONATE
     Dosage: 250 OT
     Route: 065
  12. PARACETAMOL [Concomitant]
     Active Substance: ACETAMINOPHEN
  13. DILTIAZEM. [Concomitant]
     Active Substance: DILTIAZEM
  14. MACROGOL [Concomitant]
     Active Substance: POLYETHYLENE GLYCOLS
     Route: 065
  15. FERROUS FUMARATE [Concomitant]
     Active Substance: FERROUS FUMARATE
  16. XOLAIR [Suspect]
     Active Substance: OMALIZUMAB
     Indication: ASTHMA
     Dosage: VIAL
     Route: 065
  17. MST (MORPHINE SULFATE) [Concomitant]
  18. METOCLOPRAMIDE. [Concomitant]
     Active Substance: METOCLOPRAMIDE
  19. LOSARTAN. [Concomitant]
     Active Substance: LOSARTAN
  20. 3M CAVILON ANTIFUNGAL [Concomitant]
     Active Substance: MICONAZOLE NITRATE
  21. LAXIDO [Concomitant]
     Active Substance: POLYETHYLENE GLYCOL 3350\POTASSIUM CHLORIDE\SODIUM BICARBONATE\SODIUM CHLORIDE
  22. ALENDRONIC ACID [Concomitant]
     Active Substance: ALENDRONIC ACID
  23. ORAMORPH [Concomitant]
     Active Substance: MORPHINE SULFATE
  24. ALVERINE [Concomitant]
     Active Substance: ALVERINE
  25. FUROSEMIDE. [Concomitant]
     Active Substance: FUROSEMIDE
     Route: 065
  26. IPRATROPIUM [Concomitant]
     Active Substance: IPRATROPIUM
  27. NOVORAPID [Concomitant]
     Active Substance: INSULIN ASPART
  28. RABEPRAZOLE [Concomitant]
     Active Substance: RABEPRAZOLE

REACTIONS (1)
  - Lipoma [Not Recovered/Not Resolved]

NARRATIVE: CASE EVENT DATE: 20151026
